FAERS Safety Report 6734220-8 (Version None)
Quarter: 2010Q2

REPORT INFORMATION
  Report Type: 
  Country: None (occurrence: None)
  Receive Date: 20100520
  Receipt Date: 20100506
  Transmission Date: 20101027
  Serious: Yes (Other)
  Sender: FDA-Public Use
  Company Number: PHEH2006US10893

PATIENT
  Sex: Female

DRUGS (10)
  1. ZOMETA [Suspect]
     Indication: METASTASES TO BONE
  2. FOSAMAX [Suspect]
     Route: 048
  3. SINGULAIR [Concomitant]
  4. BEXTRA [Concomitant]
  5. DIOVAN [Concomitant]
  6. EFFEXOR [Concomitant]
  7. OXYCONTIN [Suspect]
  8. ADVAIR DISKUS 100/50 [Concomitant]
  9. LORTAB [Concomitant]
  10. AMBIEN [Concomitant]

REACTIONS (22)
  - ALLERGIC SINUSITIS [None]
  - ANXIETY [None]
  - AORTIC ARTERIOSCLEROSIS [None]
  - ARTHRITIS [None]
  - ASTHMA [None]
  - BREAST CALCIFICATIONS [None]
  - BRONCHITIS [None]
  - CHRONIC OBSTRUCTIVE PULMONARY DISEASE [None]
  - CRYING [None]
  - DIZZINESS [None]
  - EMPHYSEMA [None]
  - HYPERTENSION [None]
  - INJURY [None]
  - INTRACRANIAL ANEURYSM [None]
  - JOINT SWELLING [None]
  - OSTEONECROSIS OF JAW [None]
  - OSTEOPOROSIS [None]
  - PAIN [None]
  - PLEURAL EFFUSION [None]
  - PLEURAL FIBROSIS [None]
  - POLLAKIURIA [None]
  - SEASONAL ALLERGY [None]
